FAERS Safety Report 15799623 (Version 3)
Quarter: 2019Q1

REPORT INFORMATION
  Report Type: Report from Study
  Country: KR (occurrence: KR)
  Receive Date: 20190108
  Receipt Date: 20190208
  Transmission Date: 20190417
  Serious: Yes (Hospitalization)
  Sender: FDA-Public Use
  Company Number: KR-CELGENEUS-KOR-20190100821

PATIENT
  Age: 62 Year
  Sex: Male
  Weight: 71.7 kg

DRUGS (2)
  1. ABRAXANE [Suspect]
     Active Substance: PACLITAXEL
     Indication: ADENOCARCINOMA PANCREAS
     Route: 041
     Dates: start: 20180829
  2. GEMCITABINE [Suspect]
     Active Substance: GEMCITABINE\GEMCITABINE HYDROCHLORIDE
     Indication: ADENOCARCINOMA PANCREAS
     Route: 041
     Dates: start: 20180829

REACTIONS (3)
  - Myalgia [Recovered/Resolved]
  - Pyrexia [Recovered/Resolved]
  - Feeling cold [Recovered/Resolved]

NARRATIVE: CASE EVENT DATE: 20181228
